FAERS Safety Report 7918470-0 (Version None)
Quarter: 2011Q4

REPORT INFORMATION
  Report Type: 
  Country: None (occurrence: None)
  Receive Date: 20111116
  Receipt Date: 20110830
  Transmission Date: 20120403
  Serious: No
  Sender: FDA-Public Use
  Company Number: US-COVIDIEN/TYCO HEALTHCARE/MALLINCKRODT-T201101770

PATIENT
  Sex: Male
  Weight: 156.92 kg

DRUGS (5)
  1. FENTANYL-100 [Suspect]
     Indication: PAIN
     Dosage: 100 UG/HR, Q 3 DAYS
     Route: 062
     Dates: start: 20110101
  2. POTASSIUM CHLORIDE [Concomitant]
     Indication: MINERAL SUPPLEMENTATION
     Dosage: UNK UNK, QD
  3. COUMADIN [Concomitant]
     Indication: ANTICOAGULANT THERAPY
  4. NORCO [Concomitant]
     Indication: PAIN
     Dosage: UNK, QD, PRN
  5. FENTANYL [Concomitant]
     Dosage: 100 UG/HR, UNK
     Route: 062
     Dates: start: 20030101, end: 20110101

REACTIONS (3)
  - DRUG INEFFECTIVE [None]
  - DRUG EFFECT DECREASED [None]
  - RESTLESS LEGS SYNDROME [None]
